FAERS Safety Report 5589459-4 (Version None)
Quarter: 2008Q1

REPORT INFORMATION
  Report Type: 
  Country: None (occurrence: None)
  Receive Date: 20080110
  Receipt Date: 20080110
  Transmission Date: 20080703
  Serious: Yes (Death)
  Sender: FDA-Public Use
  Company Number: None

PATIENT
  Sex: Male

DRUGS (2)
  1. OXALIPLATIN [Suspect]
     Indication: NON-SMALL CELL LUNG CANCER
     Dosage: 120MG/M2 THEN 60MG/M2 Q21D IV
     Route: 042
     Dates: start: 20070806, end: 20071127
  2. PEMETREXED [Suspect]
     Indication: NON-SMALL CELL LUNG CANCER
     Dosage: 500MG/M2 Q21D IV
     Route: 042
     Dates: start: 20070806, end: 20071127

REACTIONS (4)
  - CHRONIC OBSTRUCTIVE PULMONARY DISEASE [None]
  - METASTASES TO LIVER [None]
  - METASTASES TO STOMACH [None]
  - NON-SMALL CELL LUNG CANCER [None]
